FAERS Safety Report 6434757-5 (Version None)
Quarter: 2009Q4

REPORT INFORMATION
  Report Type: 
  Country: None (occurrence: None)
  Receive Date: 20091110
  Receipt Date: 20091030
  Transmission Date: 20100525
  Serious: Yes (Other)
  Sender: FDA-Public Use
  Company Number: FR-PFIZER INC-2009230215

PATIENT
  Sex: Female

DRUGS (2)
  1. ZYVOXID [Suspect]
     Dosage: 600 MG, 2X/DAY
     Route: 048
  2. FUCIDINE CAP [Suspect]
     Indication: STAPHYLOCOCCAL INFECTION
     Dosage: UNK

REACTIONS (2)
  - ANAEMIA [None]
  - HEPATITIS CHOLESTATIC [None]
